FAERS Safety Report 4690615-8 (Version None)
Quarter: 2005Q2

REPORT INFORMATION
  Report Type: 
  Country: None (occurrence: None)
  Receive Date: 20050615
  Receipt Date: 20010313
  Transmission Date: 20051028
  Serious: Yes (Other)
  Sender: FDA-Public Use
  Company Number: PHFR2001GB01091

PATIENT
  Age: 31 Year
  Sex: Female
  Weight: 60 kg

DRUGS (2)
  1. CLOZARIL [Suspect]
     Dosage: 500 MG/DAY
     Route: 048
     Dates: start: 19941108
  2. FOLIC ACID [Concomitant]
     Dosage: 5MG/DAY
     Route: 048
     Dates: start: 20040601

REACTIONS (4)
  - ANAEMIA [None]
  - DRUG EXPOSURE DURING PREGNANCY [None]
  - GESTATIONAL DIABETES [None]
  - PREMATURE BABY [None]
